FAERS Safety Report 9452603 (Version 1)
Quarter: 2013Q3

REPORT INFORMATION
  Report Type: Spontaneous
  Country: US (occurrence: US)
  Receive Date: 20130812
  Receipt Date: 20130812
  Transmission Date: 20140515
  Serious: No
  Sender: FDA-Public Use
  Company Number: US-PFIZER INC-2013233168

PATIENT
  Sex: Male

DRUGS (3)
  1. CHANTIX [Suspect]
     Dosage: 0.5 MG, DAILY
     Route: 048
     Dates: start: 20130807, end: 20130809
  2. CHANTIX [Suspect]
     Dosage: 0.5 MG, 2X/DAY
     Route: 048
     Dates: start: 20130810
  3. NORTRIPTYLINE [Suspect]
     Indication: HEADACHE
     Dosage: UNK

REACTIONS (3)
  - Off label use [Unknown]
  - Headache [Unknown]
  - Drug ineffective for unapproved indication [Unknown]
